FAERS Safety Report 8520179 (Version 8)
Quarter: 2013Q3

REPORT INFORMATION
  Report Type: Report from Study
  Country: JP (occurrence: JP)
  Receive Date: 20120418
  Receipt Date: 20130913
  Transmission Date: 20140515
  Serious: Yes (Other)
  Sender: FDA-Public Use
  Company Number: JP-VERTEX PHARMACEUTICAL INC.-AE-2012-005164

PATIENT
  Age: 67 Year
  Sex: Female

DRUGS (17)
  1. VX-950 (TELAPREVIR) [Suspect]
     Indication: CHRONIC HEPATITIS C
     Dosage: 2250 MG, QD
     Route: 048
     Dates: start: 20120217, end: 20120223
  2. VX-950 (TELAPREVIR) [Suspect]
     Dosage: 1500 MG, QD
     Route: 048
     Dates: start: 20120224, end: 20120322
  3. VX-950 (TELAPREVIR) [Suspect]
     Dosage: 750 MG, QD
     Route: 048
     Dates: start: 20120323, end: 20120413
  4. RIBAVIRIN [Suspect]
     Indication: CHRONIC HEPATITIS C
     Dosage: 600 MG, QD
     Route: 048
     Dates: start: 20120217, end: 20120223
  5. RIBAVIRIN [Suspect]
     Dosage: 400 MG, QD
     Route: 048
     Dates: start: 20120224, end: 20120315
  6. RIBAVIRIN [Suspect]
     Dosage: 200 MG, QD
     Route: 048
     Dates: start: 20120316, end: 20120419
  7. RIBAVIRIN [Suspect]
     Dosage: 400 MG, QD
     Route: 048
     Dates: start: 20120420, end: 20120802
  8. PEGINTRON [Suspect]
     Indication: CHRONIC HEPATITIS C
     Dosage: 1.5 ?G/KG, WEEKLY
     Route: 058
     Dates: start: 20120217, end: 20120329
  9. PEGINTRON [Suspect]
     Dosage: 1.3 ?G/KG, WEEKLY
     Route: 058
     Dates: start: 20120330
  10. PEGINTRON [Suspect]
     Dosage: 1.13 ?G/KG, WEEKLY
     Route: 058
     Dates: end: 20120405
  11. PEGINTRON [Suspect]
     Dosage: 0.94 ?G/KG, WEEKLY
     Route: 058
     Dates: start: 20120406, end: 20120426
  12. PEGINTRON [Suspect]
     Dosage: 1.13 ?G/KG, WEEKLY
     Route: 058
     Dates: start: 20120427, end: 20120510
  13. PEGINTRON [Suspect]
     Dosage: 1.3 ?G/KG, WEEKLY
     Route: 058
     Dates: start: 20120511, end: 20120802
  14. URSO [Concomitant]
     Dosage: 600 MG, QD
     Route: 048
     Dates: end: 20120224
  15. DIOVAN [Concomitant]
     Dosage: 80 MG, QD
     Route: 048
  16. AMLODIN [Concomitant]
     Dosage: 5 MG, QD
     Route: 048
  17. INNOLET [Concomitant]
     Dosage: 15 DF, QD
     Route: 058

REACTIONS (7)
  - Decreased appetite [Recovered/Resolved]
  - Renal impairment [Recovered/Resolved]
  - Hyperuricaemia [Recovered/Resolved]
  - Anaemia [Recovered/Resolved]
  - Anaemia [Recovered/Resolved]
  - Platelet count decreased [Recovered/Resolved]
  - Nausea [Recovered/Resolved]
